FAERS Safety Report 5248060-2 (Version None)
Quarter: 2007Q1

REPORT INFORMATION
  Report Type: 
  Country: None (occurrence: None)
  Receive Date: 20070222
  Receipt Date: 20070206
  Transmission Date: 20070707
  Serious: Yes (Death)
  Sender: FDA-Public Use
  Company Number: 8021922

PATIENT
  Age: 12 Year
  Sex: Male

DRUGS (4)
  1. KEPPRA [Suspect]
     Indication: EPILEPSY
     Dosage: 800 MG 2/D
     Dates: start: 20060330
  2. LAMOTRIGINE [Concomitant]
  3. CLONAZEPAM [Concomitant]
  4. OXCARBAZEPINE [Concomitant]

REACTIONS (2)
  - ILEUS [None]
  - LARGE INTESTINE PERFORATION [None]
